FAERS Safety Report 6296302-7 (Version None)
Quarter: 2009Q3

REPORT INFORMATION
  Report Type: 
  Country: None (occurrence: None)
  Receive Date: 20090804
  Receipt Date: 20090724
  Transmission Date: 20100115
  Serious: Yes (Hospitalization)
  Sender: FDA-Public Use
  Company Number: US-ALEXION-A200900602

PATIENT
  Sex: Female

DRUGS (8)
  1. SOLIRIS [Suspect]
     Indication: PAROXYSMAL NOCTURNAL HAEMOGLOBINURIA
     Dosage: 600 MG, QW
     Route: 042
     Dates: start: 20080916, end: 20080101
  2. SOLIRIS [Suspect]
     Dosage: 900 MG, Q2W
     Route: 042
     Dates: start: 20081007
  3. FOLIC ACID [Concomitant]
     Dosage: UNK
     Route: 048
  4. AMITRIPTYLINE HCL [Concomitant]
     Dosage: UNK
     Route: 048
  5. TIMOLOL MALEATE [Concomitant]
     Dosage: UNK
     Route: 031
  6. ALBUTEROL [Concomitant]
     Dosage: UNK
  7. VITAMIN D [Concomitant]
     Dosage: UNK
     Route: 048
  8. METOCLOPRAMIDE [Concomitant]
     Dosage: UNK
     Route: 048

REACTIONS (3)
  - ANGIOMYOLIPOMA [None]
  - FLANK PAIN [None]
  - THERAPEUTIC EMBOLISATION [None]
